FAERS Safety Report 9725618 (Version 1)
Quarter: 2013Q4

REPORT INFORMATION
  Report Type: Spontaneous
  Country: US (occurrence: None)
  Receive Date: 20131127
  Receipt Date: 20131127
  Transmission Date: 20140711
  Serious: Yes (Hospitalization)
  Sender: FDA-Public Use
  Company Number: DSU-2013-05224

PATIENT
  Age: 51 Year
  Sex: Female
  Weight: 52.62 kg

DRUGS (3)
  1. WELCHOL [Suspect]
     Indication: HYPERCHOLESTEROLAEMIA
     Dosage: 1875 MG (1875 MG, QD), PER ORAL
     Route: 048
     Dates: start: 2000
  2. INSULIN (INSULIN) (INSULIN) [Concomitant]
  3. LISINOPRIL (LISINOPRIL) (LISINOPRIL) [Concomitant]

REACTIONS (2)
  - Drug administration error [None]
  - Biliary cirrhosis primary [None]
